FAERS Safety Report 7823057-4 (Version None)
Quarter: 2011Q4

REPORT INFORMATION
  Report Type: 
  Country: None (occurrence: None)
  Receive Date: 20111018
  Receipt Date: 20110422
  Transmission Date: 20120403
  Serious: No
  Sender: FDA-Public Use
  Company Number: US-ASTRAZENECA-2011SE23326

PATIENT
  Age: 54 Year
  Sex: Female

DRUGS (1)
  1. SYMBICORT [Suspect]
     Dosage: 80/ 4.5 MICROGRAM
     Route: 055

REACTIONS (3)
  - APHAGIA [None]
  - DRUG DOSE OMISSION [None]
  - DYSPNOEA [None]
